FAERS Safety Report 4994067-X (Version None)
Quarter: 2006Q2

REPORT INFORMATION
  Report Type: 
  Country: None (occurrence: None)
  Receive Date: 20060505
  Receipt Date: 20060410
  Transmission Date: 20061013
  Serious: Yes (Disabling)
  Sender: FDA-Public Use
  Company Number: PHEH2006US04729

PATIENT
  Age: 64 Year
  Sex: Female
  Weight: 72.562 kg

DRUGS (6)
  1. TRILEPTAL [Suspect]
     Indication: CONVULSION
     Dosage: 150 MG, QD
     Route: 048
     Dates: start: 20050401
  2. TRILEPTAL [Suspect]
     Dosage: 300 MG, BID
     Route: 048
     Dates: start: 20050512
  3. ZETIA [Suspect]
     Indication: HYPERLIPIDAEMIA
     Dosage: 10 MG, QD
     Route: 048
     Dates: start: 20040101
  4. FLUOXETINE [Concomitant]
     Indication: DEPRESSION
     Dosage: 20 MG, QD
     Route: 048
  5. CLARITIN [Concomitant]
  6. VITAMINS [Concomitant]

REACTIONS (4)
  - DIPLOPIA [None]
  - FATIGUE [None]
  - MYALGIA [None]
  - STRABISMUS [None]
